FAERS Safety Report 24547287 (Version 2)
Quarter: 2024Q4

REPORT INFORMATION
  Report Type: Spontaneous
  Country: HN (occurrence: HN)
  Receive Date: 20241025
  Receipt Date: 20241206
  Transmission Date: 20250115
  Serious: No
  Sender: TOLMAR
  Company Number: HN-TOLMAR, INC.-24HN052909

PATIENT

DRUGS (2)
  1. ELIGARD [Suspect]
     Active Substance: LEUPROLIDE ACETATE
     Indication: Precocious puberty
     Dosage: 45 MILLIGRAM
  2. DEVICE [Suspect]
     Active Substance: DEVICE
     Indication: Precocious puberty
     Dosage: UNK

REACTIONS (2)
  - Product administration error [Unknown]
  - Syringe issue [Unknown]
